FAERS Safety Report 4502954-1 (Version None)
Quarter: 2004Q4

REPORT INFORMATION
  Report Type: 
  Country: None (occurrence: None)
  Receive Date: 20041117
  Receipt Date: 20040107
  Transmission Date: 20050328
  Serious: Yes (Hospitalization)
  Sender: FDA-Public Use
  Company Number: 200410040JP

PATIENT
  Age: 68 Year
  Sex: Female
  Weight: 58.7 kg

DRUGS (9)
  1. ARAVA [Suspect]
     Indication: RHEUMATOID ARTHRITIS
     Route: 048
     Dates: start: 20031030, end: 20031124
  2. MICARDIS [Concomitant]
     Indication: HYPERTENSION
     Route: 048
  3. PLATIBIT [Concomitant]
     Indication: OSTEOPOROSIS
     Route: 048
  4. PRAVASTATIN [Concomitant]
     Indication: HYPERLIPIDAEMIA
     Route: 048
  5. ETIZOLAM [Concomitant]
     Indication: MENTAL DISORDER
     Route: 048
  6. NAPA [Concomitant]
     Indication: HEADACHE
     Route: 048
  7. PREDNISOLONE [Concomitant]
     Indication: RHEUMATOID ARTHRITIS
     Route: 048
  8. VOLTAREN [Concomitant]
     Indication: PAIN
     Route: 048
  9. RHEUMATREX [Concomitant]
     Indication: RHEUMATOID ARTHRITIS
     Dosage: DOSE: 6MG/WEEK
     Route: 048
     Dates: end: 20031027

REACTIONS (5)
  - CEREBRAL ARTERY EMBOLISM [None]
  - CEREBRAL ATROPHY [None]
  - CEREBRAL INFARCTION [None]
  - HYPERTENSION [None]
  - VERTIGO POSITIONAL [None]
